FAERS Safety Report 9992364 (Version 2)
Quarter: 2014Q2

REPORT INFORMATION
  Report Type: Spontaneous
  Country: US (occurrence: US)
  Receive Date: 20140310
  Receipt Date: 20140409
  Transmission Date: 20141212
  Serious: Yes (Death)
  Sender: FDA-Public Use
  Company Number: US-GLAXOSMITHKLINE-A1063569A

PATIENT
  Age: 53 Year
  Sex: Male

DRUGS (2)
  1. VOTRIENT [Suspect]
     Indication: RENAL CANCER
     Dosage: 800MG PER DAY
     Route: 048
     Dates: start: 20130522
  2. AMLODIPINE [Concomitant]

REACTIONS (1)
  - Renal cancer [Fatal]
